FAERS Safety Report 9150945 (Version 1)
Quarter: 2013Q1

REPORT INFORMATION
  Report Type: Spontaneous
  Country: US (occurrence: US)
  Receive Date: 20130308
  Receipt Date: 20130308
  Transmission Date: 20140127
  Serious: No
  Sender: FDA-Public Use
  Company Number: US-GLAXOSMITHKLINE-A0973404A

PATIENT
  Age: 75 Year
  Sex: Female

DRUGS (5)
  1. OLUX E [Suspect]
     Indication: PSORIASIS
     Dosage: 1APP TWICE PER DAY
     Route: 061
     Dates: start: 201108
  2. LYRICA [Concomitant]
  3. ZYPREXA [Concomitant]
  4. CLONAZEPAM [Concomitant]
  5. ONE A DAY VITAMIN [Concomitant]

REACTIONS (4)
  - Burning sensation [Recovered/Resolved]
  - Dry skin [Unknown]
  - Drug administration error [Unknown]
  - Product quality issue [Unknown]
